FAERS Safety Report 23802320 (Version 1)
Quarter: 2024Q2

REPORT INFORMATION
  Report Type: Report from Study
  Country: US (occurrence: None)
  Receive Date: 20240501
  Receipt Date: 20240501
  Transmission Date: 20240716
  Serious: Yes (Other)
  Sender: FDA-Public Use
  Company Number: 2024A099025

PATIENT
  Sex: Female

DRUGS (10)
  1. LYNPARZA [Suspect]
     Active Substance: OLAPARIB
     Indication: Ovarian cancer
     Route: 048
  2. VITAMIN B12 [Concomitant]
     Active Substance: CYANOCOBALAMIN
  3. HYDROQUINONE [Concomitant]
     Active Substance: HYDROQUINONE
  4. PANTOPRAZOLE SODIUM [Concomitant]
     Active Substance: PANTOPRAZOLE SODIUM
  5. PACLITAXEL [Concomitant]
     Active Substance: PACLITAXEL
  6. OXALIPLATIN [Concomitant]
     Active Substance: OXALIPLATIN
  7. CARBOPLATIN [Concomitant]
     Active Substance: CARBOPLATIN
  8. TYLENOL [Concomitant]
     Active Substance: ACETAMINOPHEN
  9. FOLIC ACID\IRON\MINERALS\VITAMINS [Concomitant]
     Active Substance: FOLIC ACID\IRON\MINERALS\VITAMINS
  10. MODERNA COVID-19 VACCINE [Concomitant]
     Active Substance: ELASOMERAN

REACTIONS (2)
  - Hernia [Unknown]
  - Abdominal pain [Unknown]
